FAERS Safety Report 10172488 (Version 1)
Quarter: 2014Q2

REPORT INFORMATION
  Report Type: Report from Study
  Country: BR (occurrence: BR)
  Receive Date: 20140515
  Receipt Date: 20140515
  Transmission Date: 20141212
  Serious: Yes (Death, Hospitalization)
  Sender: FDA-Public Use
  Company Number: BR-BAYER-2014-066216

PATIENT
  Age: 57 Year
  Sex: Male
  Weight: 73 kg

DRUGS (2)
  1. NEXAVAR [Suspect]
     Indication: HEPATIC CANCER
     Dosage: 800 MG, QD
     Route: 048
     Dates: start: 20130526, end: 201403
  2. DIAMICRON [Concomitant]
     Indication: DIABETES MELLITUS
     Dosage: 1 DF, QD
     Route: 048
     Dates: start: 2011

REACTIONS (6)
  - Hepatic cancer [Fatal]
  - Encephalopathy [Not Recovered/Not Resolved]
  - Ascites [Fatal]
  - Loss of consciousness [Not Recovered/Not Resolved]
  - Hepatic cirrhosis [Fatal]
  - Respiratory failure [Fatal]
